FAERS Safety Report 5284299-8 (Version None)
Quarter: 2007Q1

REPORT INFORMATION
  Report Type: 
  Country: None (occurrence: None)
  Receive Date: 20070322
  Receipt Date: 20070314
  Transmission Date: 20070707
  Serious: Yes (Other)
  Sender: FDA-Public Use
  Company Number: THYM-11360

PATIENT
  Age: 31 Year
  Sex: Male
  Weight: 64.3 kg

DRUGS (5)
  1. THYMOGLOBULIN [Suspect]
     Indication: APLASTIC ANAEMIA
     Dosage: 225 MG ONCE; IV
     Route: 042
     Dates: start: 20070313, end: 20070313
  2. CYCLOSPORINE [Concomitant]
  3. FLUCONAZOLE [Concomitant]
  4. CIPROFLOXACIN [Concomitant]
  5. VALACYCLOVIR [Concomitant]

REACTIONS (4)
  - ALANINE AMINOTRANSFERASE INCREASED [None]
  - ASPARTATE AMINOTRANSFERASE INCREASED [None]
  - BLOOD ALKALINE PHOSPHATASE INCREASED [None]
  - BLOOD LACTATE DEHYDROGENASE INCREASED [None]
